FAERS Safety Report 9153976 (Version 1)
Quarter: 2013Q1

REPORT INFORMATION
  Report Type: Spontaneous
  Country: US (occurrence: None)
  Receive Date: 20130308
  Receipt Date: 20130308
  Transmission Date: 20140127
  Serious: Yes (Life-Threatening, Other)
  Sender: FDA-Public Use
  Company Number: None

PATIENT
  Age: 51 Year
  Sex: Female
  Weight: 63.5 kg

DRUGS (1)
  1. NITROFUR [Suspect]
     Indication: URINARY TRACT INFECTION
     Route: 048
     Dates: start: 20130227, end: 20130304

REACTIONS (4)
  - Chest pain [None]
  - Carditis [None]
  - Respiratory tract inflammation [None]
  - Fatigue [None]
